FAERS Safety Report 6591229-5 (Version None)
Quarter: 2010Q1

REPORT INFORMATION
  Report Type: 
  Country: None (occurrence: None)
  Receive Date: 20100219
  Receipt Date: 20100212
  Transmission Date: 20100710
  Serious: Yes (Hospitalization)
  Sender: FDA-Public Use
  Company Number: PHHO2009BE14996

PATIENT
  Sex: Male

DRUGS (7)
  1. AFINITOR [Suspect]
     Indication: METASTATIC RENAL CELL CARCINOMA
     Dosage: 10 MG
     Route: 048
     Dates: start: 20081106, end: 20091118
  2. ZOMETA [Suspect]
     Indication: METASTASES TO BONE
  3. LASIX [Suspect]
  4. ALDACTONE [Suspect]
  5. COVERSYL [Concomitant]
  6. SOFTENE [Concomitant]
  7. MS CONTIN [Concomitant]

REACTIONS (5)
  - DEHYDRATION [None]
  - HYPERCALCAEMIA [None]
  - HYPERKALAEMIA [None]
  - OEDEMA [None]
  - RENAL FAILURE [None]
